FAERS Safety Report 13151210 (Version 2)
Quarter: 2017Q1

REPORT INFORMATION
  Report Type: Spontaneous
  Country: US (occurrence: US)
  Receive Date: 20170125
  Receipt Date: 20170315
  Transmission Date: 20170428
  Serious: Yes (Hospitalization)
  Sender: FDA-Public Use
  Company Number: US-SA-2017SA010946

PATIENT
  Age: 68 Year
  Sex: Male
  Weight: 124.7 kg

DRUGS (2)
  1. SOLOSTAR [Concomitant]
     Active Substance: DEVICE
  2. LANTUS SOLOSTAR [Suspect]
     Active Substance: INSULIN GLARGINE
     Indication: TYPE 2 DIABETES MELLITUS
     Dosage: DOSE: 18-20 U AM/35-40 PM
     Route: 065

REACTIONS (8)
  - Visual impairment [Unknown]
  - Leg amputation [Unknown]
  - Purulent discharge [Unknown]
  - Osteomyelitis [Unknown]
  - Insulin resistance [Unknown]
  - Product use issue [Unknown]
  - Arthralgia [Unknown]
  - Joint swelling [Unknown]

NARRATIVE: CASE EVENT DATE: 2015
